FAERS Safety Report 26137462 (Version 1)
Quarter: 2025Q4

REPORT INFORMATION
  Report Type: Spontaneous
  Country: US (occurrence: US)
  Receive Date: 20251209
  Receipt Date: 20251209
  Transmission Date: 20260117
  Serious: No
  Sender: ABBVIE
  Company Number: US-ABBVIE-6581218

PATIENT
  Sex: Female

DRUGS (1)
  1. PREDNISOLONE [Suspect]
     Active Substance: PREDNISOLONE
     Indication: Postoperative care
     Dosage: AUTHORIZED GENERIC
     Route: 047

REACTIONS (2)
  - Off label use [Unknown]
  - Product colour issue [Unknown]
